FAERS Safety Report 4384365-5 (Version None)
Quarter: 2004Q2

REPORT INFORMATION
  Report Type: 
  Country: None (occurrence: None)
  Receive Date: 20040621
  Receipt Date: 20040602
  Transmission Date: 20050107
  Serious: Yes (Hospitalization)
  Sender: FDA-Public Use
  Company Number: 2004218648ES

PATIENT
  Sex: Female
  Weight: 1.6 kg

DRUGS (3)
  1. NIFEDIPINE [Suspect]
  2. DELTASONE [Suspect]
     Dosage: SEE IMAGE
  3. RANITIDINE HCL [Suspect]

REACTIONS (16)
  - ANAEMIA [None]
  - ANXIETY [None]
  - BLOOD PRESSURE INCREASED [None]
  - CAESAREAN SECTION [None]
  - DRUG EXPOSURE DURING PREGNANCY [None]
  - GENERAL PHYSICAL HEALTH DETERIORATION [None]
  - HEADACHE [None]
  - JAUNDICE NEONATAL [None]
  - LABORATORY TEST ABNORMAL [None]
  - MECONIUM INCREASED [None]
  - NEONATAL RESPIRATORY DISTRESS SYNDROME [None]
  - PARAESTHESIA [None]
  - POLYHYDRAMNIOS [None]
  - PREMATURE BABY [None]
  - THROMBOCYTOPENIA [None]
  - VOMITING [None]
